FAERS Safety Report 24553635 (Version 1)
Quarter: 2024Q4

REPORT INFORMATION
  Report Type: Spontaneous
  Country: US (occurrence: US)
  Receive Date: 20241028
  Receipt Date: 20241028
  Transmission Date: 20250114
  Serious: No
  Sender: ROCHE
  Company Number: US-ROCHE-3542481

PATIENT
  Sex: Male

DRUGS (1)
  1. NUTROPIN AQ [Suspect]
     Active Substance: SOMATROPIN
     Indication: Sickle cell disease
     Dosage: STRENGTH: 10MG/2ML
     Route: 058
     Dates: start: 202301

REACTIONS (2)
  - Off label use [Unknown]
  - No adverse event [Unknown]
